FAERS Safety Report 10301377 (Version 5)
Quarter: 2014Q3

REPORT INFORMATION
  Report Type: Report from Study
  Country: KR (occurrence: KR)
  Receive Date: 20140714
  Receipt Date: 20140806
  Transmission Date: 20150326
  Serious: Yes (Hospitalization)
  Sender: FDA-Public Use
  Company Number: KR-ROCHE-1430122

PATIENT
  Age: 67 Year
  Sex: Female
  Weight: 63 kg

DRUGS (16)
  1. LYRICA [Concomitant]
     Active Substance: PREGABALIN
     Indication: PARAESTHESIA
     Route: 065
     Dates: start: 20130716
  2. DICAMAX [Concomitant]
     Indication: OSTEOPOROSIS
     Route: 065
     Dates: start: 20130127
  3. PACLITAXEL. [Suspect]
     Active Substance: PACLITAXEL
     Indication: BREAST CANCER METASTATIC
     Dosage: ON 23/JUN/2014, MOST RECENT DOSE OF PACLITAXEL (94.0 MG) PRIOR TO AE ONSET.
     Route: 042
     Dates: start: 20131011
  4. NORMAL SALINE [Concomitant]
     Active Substance: SODIUM CHLORIDE
     Route: 065
     Dates: start: 20140703, end: 20140703
  5. ZOLPIDEM [Concomitant]
     Active Substance: ZOLPIDEM\ZOLPIDEM TARTRATE
     Indication: INSOMNIA
     Route: 065
     Dates: start: 201110
  6. MEGACE [Concomitant]
     Active Substance: MEGESTROL ACETATE
     Indication: DECREASED APPETITE
     Route: 065
     Dates: start: 20140523
  7. ETIZOLAM [Concomitant]
     Active Substance: ETIZOLAM
     Indication: INSOMNIA
     Route: 065
     Dates: start: 201310
  8. SALAGEN [Concomitant]
     Active Substance: PILOCARPINE HYDROCHLORIDE
     Indication: DRY MOUTH
     Route: 065
     Dates: start: 20140509
  9. ILVADON [Concomitant]
     Indication: THERMAL BURN
     Route: 065
     Dates: start: 20140502
  10. AUGMENTIN [Concomitant]
     Active Substance: AMOXICILLIN\CLAVULANATE POTASSIUM
     Indication: PARONYCHIA
     Route: 065
     Dates: start: 20140623
  11. TARGIN [Concomitant]
     Active Substance: NALOXONE HYDROCHLORIDE\OXYCODONE HYDROCHLORIDE
     Indication: BACK PAIN
     Route: 065
     Dates: start: 20140502
  12. XANAX [Concomitant]
     Active Substance: ALPRAZOLAM
     Indication: DEPRESSION
     Route: 065
     Dates: start: 20140509
  13. STILNOX [Concomitant]
     Active Substance: ZOLPIDEM TARTRATE
     Indication: INSOMNIA
     Route: 065
     Dates: start: 20140609
  14. BLINDED BEVACIZUMAB [Suspect]
     Active Substance: BEVACIZUMAB
     Indication: BREAST CANCER METASTATIC
     Dosage: DATE OF MOST RECENT DOSE OF BEVACIZUMAB/PLACEBO PRIOR TO AE ONSET: 23/JUN/2014
     Route: 042
     Dates: start: 20131011
  15. REMERON [Concomitant]
     Active Substance: MIRTAZAPINE
     Indication: DEPRESSION
     Route: 065
     Dates: start: 2011
  16. SOMALGEN [Concomitant]
     Indication: PARONYCHIA
     Route: 065
     Dates: start: 20140623

REACTIONS (1)
  - Urine output decreased [Recovered/Resolved with Sequelae]

NARRATIVE: CASE EVENT DATE: 20140703
